FAERS Safety Report 24715878 (Version 1)
Quarter: 2024Q4

REPORT INFORMATION
  Report Type: Report from Study
  Country: US (occurrence: US)
  Receive Date: 20241210
  Receipt Date: 20241210
  Transmission Date: 20250114
  Serious: Yes (Hospitalization, Other)
  Sender: Pyros Pharmaceuticals
  Company Number: US-PYROS PHARMACEUTICALS, INC-2024-PYROS-US000034

PATIENT
  Sex: Male
  Weight: 9.53 kg

DRUGS (4)
  1. VIGPODER [Suspect]
     Active Substance: VIGABATRIN
     Indication: Tuberous sclerosis complex
     Dosage: 650 MG (13 ML), BID
     Route: 048
     Dates: start: 20240621, end: 2024
  2. VIGPODER [Suspect]
     Active Substance: VIGABATRIN
     Indication: Electroencephalogram abnormal
     Dosage: 800 MG (16 ML), BID
     Route: 048
     Dates: start: 2024
  3. KEPPRA [Concomitant]
     Active Substance: LEVETIRACETAM
     Indication: Seizure
     Dosage: 1.5 ML, BID
     Route: 065
  4. DIASTAT [Concomitant]
     Active Substance: DIAZEPAM
     Indication: Seizure
     Dosage: 5 MG, PRN
     Route: 065

REACTIONS (5)
  - Seizure [Unknown]
  - Drug ineffective [Unknown]
  - Off label use [Unknown]
  - Ear infection [Unknown]
  - Prescribed overdose [Unknown]

NARRATIVE: CASE EVENT DATE: 20240101
